FAERS Safety Report 16094710 (Version 1)
Quarter: 2019Q1

REPORT INFORMATION
  Report Type: Spontaneous
  Country: US (occurrence: US)
  Receive Date: 20190218
  Receipt Date: 20190218
  Transmission Date: 20190418
  Serious: Yes (Hospitalization)
  Sender: FDA-Public Use
  Company Number: None

PATIENT
  Age: 53 Year
  Sex: Female

DRUGS (1)
  1. COSENTYX [Suspect]
     Active Substance: SECUKINUMAB
     Indication: PSORIASIS
     Dosage: 2 PENS Q 4 WEEKS PO
     Route: 048
     Dates: start: 20190123

REACTIONS (2)
  - Foot fracture [None]
  - Therapy cessation [None]

NARRATIVE: CASE EVENT DATE: 201812
